FAERS Safety Report 16251451 (Version 4)
Quarter: 2019Q3

REPORT INFORMATION
  Report Type: Spontaneous
  Country: US (occurrence: US)
  Receive Date: 20190429
  Receipt Date: 20190919
  Transmission Date: 20191004
  Serious: Yes (Hospitalization, Other)
  Sender: FDA-Public Use
  Company Number: US-CATALYST PHARMACEUTICALS, INC-2019CAT00098

PATIENT
  Age: 50 Year
  Sex: Female
  Weight: 63.49 kg

DRUGS (3)
  1. FIRDAPSE [Suspect]
     Active Substance: AMIFAMPRIDINE
     Indication: MYASTHENIC SYNDROME
     Dosage: 10 MG, 8X/DAY
     Route: 048
     Dates: start: 20190306, end: 20190321
  2. FIRDAPSE [Suspect]
     Active Substance: AMIFAMPRIDINE
     Dosage: 80 MG, DAILY
     Route: 048
     Dates: start: 2019, end: 20190816
  3. FIRDAPSE [Suspect]
     Active Substance: AMIFAMPRIDINE
     Dosage: 10-15 MG PER DOSE, TOTAL DAILY DOSE OF 90-100 MG
     Route: 048
     Dates: start: 20190322, end: 2019

REACTIONS (11)
  - Pleural effusion [Recovering/Resolving]
  - Aspiration pleural cavity [Recovering/Resolving]
  - Cough [Recovering/Resolving]
  - Malaise [Not Recovered/Not Resolved]
  - Prescribed overdose [Not Recovered/Not Resolved]
  - Hypersensitivity [Unknown]
  - Asthenia [Recovering/Resolving]
  - Therapeutic product effect incomplete [Recovering/Resolving]
  - Dysphagia [Recovering/Resolving]
  - Quality of life decreased [Recovering/Resolving]
  - Inflammation [Recovering/Resolving]

NARRATIVE: CASE EVENT DATE: 2019
